FAERS Safety Report 9357761 (Version 4)
Quarter: 2015Q2

REPORT INFORMATION
  Report Type: Report from Study
  Country: CN (occurrence: CN)
  Receive Date: 20130620
  Receipt Date: 20150617
  Transmission Date: 20150821
  Serious: Yes (Hospitalization, Other)
  Sender: FDA-Public Use
  Company Number: CN-ROCHE-1236586

PATIENT
  Age: 50 Year
  Sex: Female
  Weight: 59 kg

DRUGS (20)
  1. CEFOPERAZONE SODIUM/SULBACTAM SODIUM [Concomitant]
     Active Substance: CEFOPERAZONE SODIUM\SULBACTAM SODIUM
     Route: 065
     Dates: start: 20130611, end: 20130618
  2. TRASTUZUMAB [Suspect]
     Active Substance: TRASTUZUMAB
     Dosage: MAINTENANCE DOSE, LAST DOSE PRIOR TO SAE ON 24/MAY/2013.
     Route: 042
     Dates: start: 20130702
  3. DOCETAXEL. [Suspect]
     Active Substance: DOCETAXEL
     Route: 042
     Dates: start: 20130702
  4. POTASSIUM CHLORIDE. [Concomitant]
     Active Substance: POTASSIUM CHLORIDE
     Route: 065
     Dates: start: 20130611, end: 20130613
  5. YIXUESHENG CAPSULE [Concomitant]
     Route: 065
     Dates: start: 20130615, end: 20131209
  6. DOCETAXEL. [Suspect]
     Active Substance: DOCETAXEL
     Indication: HER-2 POSITIVE BREAST CANCER
     Dosage: LAST DOSE PRIOR TO SAE ON 24/MAY/2013.
     Route: 042
     Dates: start: 20130412, end: 20130614
  7. VITAMIN B6 [Concomitant]
     Active Substance: PYRIDOXINE HYDROCHLORIDE
     Route: 065
     Dates: start: 20130610, end: 20130619
  8. TRASTUZUMAB [Suspect]
     Active Substance: TRASTUZUMAB
     Indication: HER-2 POSITIVE BREAST CANCER
     Dosage: LOADING DOSE
     Route: 042
     Dates: start: 20130412
  9. CARBOPLATIN. [Suspect]
     Active Substance: CARBOPLATIN
     Route: 042
     Dates: start: 20130702
  10. TRASTUZUMAB [Suspect]
     Active Substance: TRASTUZUMAB
     Dosage: MAINTENANCE DOSE, LAST DOSE PRIOR TO SAE ON 24/MAY/2013.
     Route: 042
     Dates: end: 20130614
  11. CARBOPLATIN. [Suspect]
     Active Substance: CARBOPLATIN
     Indication: HER-2 POSITIVE BREAST CANCER
     Route: 042
  12. PENTOXYVERINE CITRATE [Concomitant]
     Active Substance: PENTOXYVERINE CITRATE
     Route: 065
     Dates: start: 20130610, end: 20130619
  13. MECOBALAMINE [Concomitant]
     Route: 065
     Dates: start: 20130610, end: 20130619
  14. PERTUZUMAB [Suspect]
     Active Substance: PERTUZUMAB
     Indication: HER-2 POSITIVE BREAST CANCER
     Route: 042
     Dates: start: 20130412
  15. PERTUZUMAB [Suspect]
     Active Substance: PERTUZUMAB
     Dosage: MOST RECENT DOSE PRIOR TO SAE: 24/MAY/2013
     Route: 042
     Dates: end: 20130614
  16. PERTUZUMAB [Suspect]
     Active Substance: PERTUZUMAB
     Route: 042
     Dates: start: 20130702
  17. CARBOPLATIN. [Suspect]
     Active Substance: CARBOPLATIN
     Route: 042
     Dates: start: 20130602
  18. DOCETAXEL. [Suspect]
     Active Substance: DOCETAXEL
     Dosage: LAST DOSE PRIOR TO SAE ON 24/MAY/2013.
     Route: 042
     Dates: start: 20130602
  19. GLYCYRRHIZIN [Concomitant]
     Active Substance: GLYCYRRHIZIN
     Route: 065
     Dates: start: 20130822, end: 20130822
  20. SODIUM BICARBONATE. [Concomitant]
     Active Substance: SODIUM BICARBONATE
     Route: 065
     Dates: start: 20130610, end: 20130610

REACTIONS (1)
  - Bone marrow failure [Recovered/Resolved]

NARRATIVE: CASE EVENT DATE: 20130604
